FAERS Safety Report 4657588-5 (Version None)
Quarter: 2005Q2

REPORT INFORMATION
  Report Type: 
  Country: None (occurrence: None)
  Receive Date: 20050405
  Receipt Date: 20040308
  Transmission Date: 20051028
  Serious: Yes (Other)
  Sender: FDA-Public Use
  Company Number: 2004016035

PATIENT
  Age: 54 Year
  Sex: Female

DRUGS (2)
  1. GEODON [Suspect]
     Indication: SCHIZOPHRENIA
     Dosage: 80 MG (DAILY), ORAL
     Route: 048
     Dates: start: 20040201
  2. PHENYTOIN SODIUM CAP [Concomitant]

REACTIONS (3)
  - DRUG INEFFECTIVE [None]
  - MOOD SWINGS [None]
  - PETIT MAL EPILEPSY [None]
